FAERS Safety Report 13808799 (Version 2)
Quarter: 2017Q3

REPORT INFORMATION
  Report Type: Report from Study
  Country: US (occurrence: US)
  Receive Date: 20170728
  Receipt Date: 20170729
  Transmission Date: 20171127
  Serious: No
  Sender: FDA-Public Use
  Company Number: US-AMGEN-USASL2017063870

PATIENT
  Age: 77 Year
  Sex: Female

DRUGS (2)
  1. REPATHA [Suspect]
     Active Substance: EVOLOCUMAB
     Indication: TEMPORAL ARTERITIS
     Dosage: 140 MG, Q2WK
     Route: 065
     Dates: end: 201701
  2. PREDNISONE. [Concomitant]
     Active Substance: PREDNISONE

REACTIONS (5)
  - Swelling face [Unknown]
  - Dyspnoea [Unknown]
  - Blood pressure increased [Unknown]
  - Eye swelling [Unknown]
  - Off label use [Unknown]
